FAERS Safety Report 14546256 (Version 1)
Quarter: 2018Q1

REPORT INFORMATION
  Report Type: Spontaneous
  Country: US (occurrence: US)
  Receive Date: 20180219
  Receipt Date: 20180219
  Transmission Date: 20180509
  Serious: No
  Sender: FDA-Public Use
  Company Number: US-BRISTOL-MYERS SQUIBB COMPANY-BMS-2018-015722

PATIENT
  Sex: Male

DRUGS (1)
  1. OPDIVO [Suspect]
     Active Substance: NIVOLUMAB
     Indication: PRODUCT USED FOR UNKNOWN INDICATION
     Dosage: DOSING: 2 X^S PER MONTH
     Route: 065

REACTIONS (5)
  - Pain [Unknown]
  - Sleep disorder [Unknown]
  - Weight decreased [Unknown]
  - Headache [Unknown]
  - Fatigue [Unknown]
